FAERS Safety Report 7914497-3 (Version None)
Quarter: 2011Q4

REPORT INFORMATION
  Report Type: 
  Country: None (occurrence: None)
  Receive Date: 20111115
  Receipt Date: 20111108
  Transmission Date: 20120403
  Serious: Yes (Other)
  Sender: FDA-Public Use
  Company Number: US-JNJFOC-20111103486

PATIENT
  Age: 59 Year
  Sex: Female

DRUGS (20)
  1. DOXORUBICIN HCL [Suspect]
     Route: 042
  2. CARMUSTINE [Suspect]
     Route: 065
  3. PAMIDRONATE DISODIUM [Suspect]
     Indication: MULTIPLE MYELOMA
     Route: 042
  4. PAMIDRONATE DISODIUM [Suspect]
     Route: 042
  5. DOXORUBICIN HCL [Suspect]
     Route: 042
  6. DOXORUBICIN HCL [Suspect]
     Dosage: ONCE EVERY 4 WEEKS
     Route: 042
     Dates: start: 20000101
  7. DEXAMETHASONE [Suspect]
     Route: 065
  8. PAMIDRONATE DISODIUM [Suspect]
     Route: 042
  9. DEXAMETHASONE [Suspect]
     Route: 065
  10. BORTEZOMIB [Suspect]
     Indication: MULTIPLE MYELOMA
     Dosage: ON DAYS 1,4, 8 AND EVERY 21 DAYS
     Route: 065
  11. CARMUSTINE [Suspect]
     Route: 065
  12. PAMIDRONATE DISODIUM [Suspect]
     Route: 042
  13. DOXORUBICIN HCL [Suspect]
     Route: 042
  14. THALIDOMIDE [Suspect]
     Indication: MULTIPLE MYELOMA
     Route: 065
  15. CARMUSTINE [Suspect]
     Indication: MULTIPLE MYELOMA
     Route: 065
  16. DEXAMETHASONE [Suspect]
     Indication: MULTIPLE MYELOMA
     Route: 065
  17. DOXORUBICIN HCL [Suspect]
     Indication: MULTIPLE MYELOMA
     Route: 042
  18. CARMUSTINE [Suspect]
     Route: 065
  19. DEXAMETHASONE [Suspect]
     Route: 065
  20. BORTEZOMIB [Suspect]
     Dosage: 1.3 MG/MM3 ON DAYS 1,4,8 AND 11 EVERY 3 WEEKS OF DOXORUBICIN
     Route: 065

REACTIONS (3)
  - CARDIAC FAILURE CONGESTIVE [None]
  - BLOOD IMMUNOGLOBULIN A INCREASED [None]
  - FEBRILE NEUTROPENIA [None]
